FAERS Safety Report 7842836-0 (Version None)
Quarter: 2011Q4

REPORT INFORMATION
  Report Type: 
  Country: None (occurrence: None)
  Receive Date: 20111025
  Receipt Date: 20111020
  Transmission Date: 20120403
  Serious: Yes (Hospitalization, Other)
  Sender: FDA-Public Use
  Company Number: ES-PFIZER INC-2011254680

PATIENT
  Age: 85 Year
  Sex: Male

DRUGS (1)
  1. ATORVASTATIN [Suspect]
     Indication: ISCHAEMIC CARDIOMYOPATHY
     Dosage: 80 MG, 1X/DAY
     Route: 048
     Dates: start: 20080401, end: 20080721

REACTIONS (1)
  - PANCREATITIS ACUTE [None]
